FAERS Safety Report 12693199 (Version 1)
Quarter: 2016Q3

REPORT INFORMATION
  Report Type: Spontaneous
  Country: US (occurrence: None)
  Receive Date: 20160826
  Receipt Date: 20160826
  Transmission Date: 20161109
  Serious: No
  Sender: FDA-Public Use
  Company Number: None

PATIENT

DRUGS (2)
  1. LIOTHYRONINE SODIUM 5 MCG [Concomitant]
     Active Substance: LIOTHYRONINE SODIUM
  2. CYTOMEL [Suspect]
     Active Substance: LIOTHYRONINE SODIUM

REACTIONS (2)
  - Incorrect dose administered [None]
  - Drug dispensing error [None]
